FAERS Safety Report 9051567 (Version 4)
Quarter: 2013Q3

REPORT INFORMATION
  Report Type: Spontaneous
  Country: US (occurrence: US)
  Receive Date: 20130207
  Receipt Date: 20130816
  Transmission Date: 20140515
  Serious: Yes (Hospitalization)
  Sender: FDA-Public Use
  Company Number: US-BIOGENIDEC-2013BI009444

PATIENT
  Age: 58 Year
  Sex: Female

DRUGS (1)
  1. AVONEX [Suspect]
     Indication: MULTIPLE SCLEROSIS
     Route: 030
     Dates: start: 20050820, end: 20130708

REACTIONS (6)
  - Abasia [Unknown]
  - Spinal compression fracture [Recovered/Resolved]
  - Ligament sprain [Unknown]
  - Musculoskeletal disorder [Unknown]
  - Hemiparesis [Unknown]
  - Asthenia [Unknown]
